FAERS Safety Report 7765205-0 (Version None)
Quarter: 2011Q3

REPORT INFORMATION
  Report Type: 
  Country: None (occurrence: None)
  Receive Date: 20110921
  Receipt Date: 20110916
  Transmission Date: 20111222
  Serious: Yes (Hospitalization)
  Sender: FDA-Public Use
  Company Number: US-GLAXOSMITHKLINE-A0881671A

PATIENT
  Age: 58 Year
  Sex: Female
  Weight: 79.5 kg

DRUGS (9)
  1. AVANDIA [Suspect]
     Indication: DIABETES MELLITUS
     Dosage: 4MG PER DAY
     Route: 048
     Dates: start: 20070501, end: 20070701
  2. HYDROCHLOROTHIAZIDE [Concomitant]
  3. NASONEX [Concomitant]
  4. GLIPIZIDE [Concomitant]
  5. LESCOL [Concomitant]
  6. REMERON [Concomitant]
  7. HYDROCODONE [Concomitant]
  8. METFORMIN HCL [Concomitant]
  9. LISINOPRIL [Concomitant]

REACTIONS (2)
  - ACUTE CORONARY SYNDROME [None]
  - MYOCARDIAL INFARCTION [None]
